FAERS Safety Report 18918034 (Version 1)
Quarter: 2021Q1

REPORT INFORMATION
  Report Type: Spontaneous
  Country: US (occurrence: US)
  Receive Date: 20210219
  Receipt Date: 20210219
  Transmission Date: 20210420
  Serious: No
  Sender: FDA-Public Use
  Company Number: US-PERRIGO-20US007781

PATIENT
  Sex: Female
  Weight: 68.03 kg

DRUGS (2)
  1. KETOCONAZOLE. [Suspect]
     Active Substance: KETOCONAZOLE
     Indication: SCAB
     Dosage: SMALL AMOUNT, QD OR QOD, FOR 2 MONTHS
     Route: 061
     Dates: start: 2010, end: 2010
  2. KETOCONAZOLE. [Suspect]
     Active Substance: KETOCONAZOLE
     Indication: ALOPECIA
     Dosage: SMALL AMOUNT, QD OR QOD
     Route: 061
     Dates: start: 20200410

REACTIONS (2)
  - Drug effective for unapproved indication [Unknown]
  - Drug ineffective for unapproved indication [Unknown]

NARRATIVE: CASE EVENT DATE: 2010
